FAERS Safety Report 8819750 (Version 2)
Quarter: 2014Q3

REPORT INFORMATION
  Report Type: Report from Study
  Country: US (occurrence: US)
  Receive Date: 20121001
  Receipt Date: 20140819
  Transmission Date: 20150326
  Serious: Yes (Other)
  Sender: FDA-Public Use
  Company Number: US-ROCHE-1129926

PATIENT
  Sex: Female

DRUGS (8)
  1. HERCEPTIN [Suspect]
     Active Substance: TRASTUZUMAB
     Indication: MALIGNANT PLEURAL EFFUSION
     Route: 042
     Dates: start: 200004
  2. VANCOMYCIN [Concomitant]
     Active Substance: VANCOMYCIN
  3. PREDNISONE. [Concomitant]
     Active Substance: PREDNISONE
     Route: 065
  4. HERCEPTIN [Suspect]
     Active Substance: TRASTUZUMAB
     Indication: BREAST CANCER FEMALE
     Route: 042
     Dates: start: 20000706
  5. TAXOL [Concomitant]
     Active Substance: PACLITAXEL
     Route: 065
  6. PREDNISONE. [Concomitant]
     Active Substance: PREDNISONE
     Route: 065
  7. LEVAQUIN [Concomitant]
     Active Substance: LEVOFLOXACIN
     Route: 065
  8. HERCEPTIN [Suspect]
     Active Substance: TRASTUZUMAB
     Indication: BREAST CANCER METASTATIC
     Dosage: LOADING 4 MG/KG AND MAINTENANCE DOSE 2 MG/KG
     Route: 042

REACTIONS (7)
  - Abdominal pain [Unknown]
  - Metastases to bone [Unknown]
  - Fatigue [Unknown]
  - Pyrexia [Unknown]
  - Neuralgia [Unknown]
  - Diarrhoea [Unknown]
  - Lymphadenopathy [Unknown]
